FAERS Safety Report 10335818 (Version 3)
Quarter: 2015Q1

REPORT INFORMATION
  Report Type: Spontaneous
  Country: US (occurrence: US)
  Receive Date: 20140723
  Receipt Date: 20150119
  Transmission Date: 20150720
  Serious: No
  Sender: FDA-Public Use
  Company Number: US-UNITED THERAPEUTICS-UTC-047829

PATIENT
  Age: 40 Year
  Sex: Female
  Weight: 108.39 kg

DRUGS (1)
  1. REMODULIN [Suspect]
     Active Substance: TREPROSTINIL
     Dosage: .023 UG/KG/MIN
     Route: 041
     Dates: start: 20140411

REACTIONS (7)
  - Diarrhoea [Unknown]
  - Injection site swelling [Unknown]
  - Headache [Unknown]
  - Nausea [Unknown]
  - Injection site pain [Unknown]
  - Injection site discharge [Unknown]
  - Injection site pustule [Unknown]

NARRATIVE: CASE EVENT DATE: 201404
